FAERS Safety Report 11843045 (Version 1)
Quarter: 2015Q4

REPORT INFORMATION
  Report Type: Spontaneous
  Country: CN (occurrence: CN)
  Receive Date: 20151216
  Receipt Date: 20151216
  Transmission Date: 20160305
  Serious: Yes (Other)
  Sender: FDA-Public Use
  Company Number: CN-BAXTER-2015BAX067195

PATIENT
  Age: 58 Year
  Sex: Female
  Weight: 57 kg

DRUGS (2)
  1. 0.9% SODIUM CHLORIDE INJECTION [Suspect]
     Active Substance: SODIUM CHLORIDE
     Indication: LUNG INFECTION
     Route: 041
     Dates: start: 20150408, end: 20150408
  2. PENICILLIN SODIUM [Suspect]
     Active Substance: PENICILLIN G SODIUM
     Indication: LUNG INFECTION
     Dosage: 4.8 MILLION UNITS
     Route: 041
     Dates: start: 20150408, end: 20150408

REACTIONS (2)
  - Palpitations [Recovering/Resolving]
  - Pyrexia [Recovering/Resolving]

NARRATIVE: CASE EVENT DATE: 20150408
